FAERS Safety Report 19657313 (Version 2)
Quarter: 2021Q3

REPORT INFORMATION
  Report Type: Other
  Country: JP (occurrence: JP)
  Receive Date: 20210804
  Receipt Date: 20210813
  Transmission Date: 20211014
  Serious: Yes (Hospitalization, Other)
  Sender: FDA-Public Use
  Company Number: JP-ROCHE-2882613

PATIENT
  Age: 51 Year
  Sex: Male

DRUGS (2)
  1. XELODA [Suspect]
     Active Substance: CAPECITABINE
     Indication: ANAL CANCER
     Route: 048
  2. OXALIPLATIN. [Concomitant]
     Active Substance: OXALIPLATIN
     Indication: ANAL CANCER
     Route: 041

REACTIONS (5)
  - Off label use [Unknown]
  - Duodenal ulcer [Unknown]
  - Decreased appetite [Unknown]
  - Blood creatinine increased [Unknown]
  - Necrotising oesophagitis [Recovering/Resolving]
